FAERS Safety Report 21270825 (Version 1)
Quarter: 2022Q3

REPORT INFORMATION
  Report Type: Spontaneous
  Country: US (occurrence: US)
  Receive Date: 20220830
  Receipt Date: 20220830
  Transmission Date: 20221026
  Serious: No
  Sender: FDA-Public Use
  Company Number: US-BIOMARINAP-US-2022-145145

PATIENT

DRUGS (1)
  1. VOXZOGO [Suspect]
     Active Substance: VOSORITIDE
     Indication: Osteochondrodysplasia
     Dosage: 0.56 MILLIGRAM, QD
     Route: 058
     Dates: start: 20220608

REACTIONS (4)
  - Injection site erythema [Unknown]
  - Injection site swelling [Unknown]
  - Injection site pruritus [Unknown]
  - Injection site rash [Unknown]

NARRATIVE: CASE EVENT DATE: 20220823
